FAERS Safety Report 6902627-1 (Version None)
Quarter: 2010Q3

REPORT INFORMATION
  Report Type: 
  Country: None (occurrence: None)
  Receive Date: 20100803
  Receipt Date: 20080714
  Transmission Date: 20110219
  Serious: No
  Sender: FDA-Public Use
  Company Number: US-PFIZER INC-2008057960

PATIENT
  Sex: Female
  Weight: 59.1 kg

DRUGS (3)
  1. LYRICA [Suspect]
     Indication: BACK PAIN
     Route: 048
     Dates: start: 20060101
  2. LYRICA [Suspect]
     Indication: FIBROMYALGIA
  3. METHADONE HCL [Concomitant]

REACTIONS (1)
  - DRUG INEFFECTIVE [None]
